FAERS Safety Report 12471734 (Version 1)
Quarter: 2016Q2

REPORT INFORMATION
  Report Type: Spontaneous
  Country: JP (occurrence: JP)
  Receive Date: 20160616
  Receipt Date: 20160616
  Transmission Date: 20160815
  Serious: Yes (Other)
  Sender: FDA-Public Use
  Company Number: JP-PFIZER INC-2016296011

PATIENT
  Sex: Female

DRUGS (1)
  1. XALATAN [Suspect]
     Active Substance: LATANOPROST
     Dosage: UNK UNK, DAILY AT NIGHT
     Route: 047
     Dates: start: 2003

REACTIONS (10)
  - Oral herpes [Unknown]
  - Growth of eyelashes [Unknown]
  - Blepharal pigmentation [Unknown]
  - Cough [Unknown]
  - Dizziness [Unknown]
  - Atypical mycobacterial infection [Unknown]
  - Vision blurred [Unknown]
  - Neoplasm malignant [Unknown]
  - Bradycardia [Unknown]
  - Arrhythmia [Unknown]
